FAERS Safety Report 24075672 (Version 1)
Quarter: 2024Q3

REPORT INFORMATION
  Report Type: Spontaneous
  Country: FR (occurrence: FR)
  Receive Date: 20240710
  Receipt Date: 20240710
  Transmission Date: 20241017
  Serious: Yes (Hospitalization, Congenital Anomaly, Other)
  Sender: MYLAN
  Company Number: None

PATIENT
  Sex: Female
  Weight: 2.36 kg

DRUGS (7)
  1. FUROSEMIDE [Suspect]
     Active Substance: FUROSEMIDE
     Indication: Dilated cardiomyopathy
     Dosage: 40 MILLIGRAM, QD (1 TABLET IN THE MORNING)
     Route: 064
     Dates: start: 20210824, end: 20220427
  2. FUROSEMIDE [Suspect]
     Active Substance: FUROSEMIDE
     Dosage: 40 MILLIGRAM, QD (2 TABLETS A DAY)
     Route: 064
     Dates: start: 20210920
  3. BISOPROLOL [Suspect]
     Active Substance: BISOPROLOL\BISOPROLOL FUMARATE
     Indication: Dilated cardiomyopathy
     Dosage: 5 MILLIGRAM, QD (IN THE MORNING)
     Route: 064
     Dates: start: 20210824, end: 20210920
  4. BISOPROLOL [Suspect]
     Active Substance: BISOPROLOL\BISOPROLOL FUMARATE
     Dosage: 5 MILLIGRAM, BID (INCREASED TO 5MG IN THE MORNING AND EVENING)
     Route: 064
     Dates: start: 20210920, end: 20220427
  5. ENTRESTO [Suspect]
     Active Substance: SACUBITRIL\VALSARTAN
     Indication: Dilated cardiomyopathy
     Dosage: 1 DOSAGE FORM, BID (1 TABLET MORNING AND EVENING)
     Route: 064
     Dates: start: 20210824, end: 20210920
  6. DAPAGLIFLOZIN [Suspect]
     Active Substance: DAPAGLIFLOZIN
     Indication: Dilated cardiomyopathy
     Dosage: 10 MILLIGRAM
     Route: 064
     Dates: start: 20210911, end: 20210920
  7. ALDACTONE [Suspect]
     Active Substance: SPIRONOLACTONE
     Indication: Dilated cardiomyopathy
     Dosage: 50 MILLIGRAM, QD
     Route: 064
     Dates: start: 20210824, end: 20210920

REACTIONS (3)
  - Left ventricular dysfunction [Unknown]
  - Patent ductus arteriosus [Unknown]
  - Foetal exposure during pregnancy [Recovered/Resolved]
